FAERS Safety Report 9894156 (Version 2)
Quarter: 2014Q2

REPORT INFORMATION
  Report Type: Spontaneous
  Country: US (occurrence: US)
  Receive Date: 20140213
  Receipt Date: 20140403
  Transmission Date: 20141212
  Serious: No
  Sender: FDA-Public Use
  Company Number: US-PFIZER INC-2014036836

PATIENT
  Age: 88 Year
  Sex: Female

DRUGS (4)
  1. TENORMIN [Suspect]
     Indication: CARDIAC DISORDER
     Dosage: 25 MG, DAILY
  2. COSOPT [Suspect]
     Dosage: UNK
     Route: 047
  3. BABY ASPIRIN [Suspect]
     Dosage: UNK
  4. XALATAN [Concomitant]
     Dosage: UNK

REACTIONS (2)
  - Flashback [Unknown]
  - Contusion [Unknown]
